FAERS Safety Report 9925081 (Version 1)
Quarter: 2014Q1

REPORT INFORMATION
  Report Type: Spontaneous
  Country: US (occurrence: None)
  Receive Date: 20140225
  Receipt Date: 20140225
  Transmission Date: 20141002
  Serious: Yes (Disabling)
  Sender: FDA-Public Use
  Company Number: None

PATIENT
  Age: 56 Year
  Sex: Female
  Weight: 58.97 kg

DRUGS (1)
  1. VENLAFAXINE HCL [Suspect]
     Indication: MENOPAUSAL SYMPTOMS
     Dosage: 1 CAPSULE ONCE DAILY ??6 TO 8 WEEKS
     Route: 048

REACTIONS (9)
  - Menopausal symptoms [None]
  - Hot flush [None]
  - Poor quality sleep [None]
  - Nocturia [None]
  - Weight increased [None]
  - Depressed mood [None]
  - Anger [None]
  - Product quality issue [None]
  - Disease recurrence [None]
